FAERS Safety Report 21994266 (Version 2)
Quarter: 2023Q2

REPORT INFORMATION
  Report Type: Other
  Country: CA (occurrence: CA)
  Receive Date: 20230215
  Receipt Date: 20230608
  Transmission Date: 20230721
  Serious: Yes (Other)
  Sender: FDA-Public Use
  Company Number: CA-PFIZER INC-202300063518

PATIENT
  Age: 90 Year
  Sex: Female

DRUGS (13)
  1. MIDAZOLAM [Suspect]
     Active Substance: MIDAZOLAM
     Indication: Generalised tonic-clonic seizure
     Dosage: UNK
     Route: 065
  2. MIDAZOLAM [Suspect]
     Active Substance: MIDAZOLAM
     Indication: Malignant neoplasm progression
  3. MIDAZOLAM [Suspect]
     Active Substance: MIDAZOLAM
     Indication: Glioblastoma multiforme
  4. LEVOMEPROMAZINE [Suspect]
     Active Substance: LEVOMEPROMAZINE
     Indication: Malignant neoplasm progression
     Dosage: UNK
     Route: 065
  5. LEVOMEPROMAZINE [Suspect]
     Active Substance: LEVOMEPROMAZINE
     Indication: Glioblastoma multiforme
  6. DEXAMETHASONE [Concomitant]
     Active Substance: DEXAMETHASONE
     Indication: Malignant neoplasm progression
     Dosage: UNK
     Route: 065
  7. DEXAMETHASONE [Concomitant]
     Active Substance: DEXAMETHASONE
     Indication: Glioblastoma multiforme
  8. GLYCOPYRROLATE [Concomitant]
     Active Substance: GLYCOPYRROLATE
     Indication: Glioblastoma multiforme
     Dosage: UNK
     Route: 065
  9. GLYCOPYRROLATE [Concomitant]
     Active Substance: GLYCOPYRROLATE
     Indication: Malignant neoplasm progression
  10. HALDOL [Concomitant]
     Active Substance: HALOPERIDOL
     Indication: Malignant neoplasm progression
     Dosage: UNK
     Route: 065
  11. HALDOL [Concomitant]
     Active Substance: HALOPERIDOL
     Indication: Glioblastoma multiforme
  12. HYDROMORPHONE [Concomitant]
     Active Substance: HYDROMORPHONE
     Indication: Malignant neoplasm progression
     Dosage: UNK
     Route: 065
  13. HYDROMORPHONE [Concomitant]
     Active Substance: HYDROMORPHONE
     Indication: Glioblastoma multiforme

REACTIONS (5)
  - Generalised tonic-clonic seizure [Unknown]
  - Condition aggravated [Unknown]
  - Therapy partial responder [Unknown]
  - Inappropriate antidiuretic hormone secretion [Unknown]
  - Off label use [Unknown]
